FAERS Safety Report 25185427 (Version 1)
Quarter: 2025Q2

REPORT INFORMATION
  Report Type: Spontaneous
  Country: GB (occurrence: GB)
  Receive Date: 20250410
  Receipt Date: 20250410
  Transmission Date: 20250716
  Serious: Yes (Death, Life-Threatening, Hospitalization, Other)
  Sender: MYLAN
  Company Number: None

PATIENT
  Age: 55 Year
  Sex: Female

DRUGS (1)
  1. EVEROLIMUS [Suspect]
     Active Substance: EVEROLIMUS
     Indication: Carcinoid tumour
     Dosage: 10 MILLIGRAM, QD (10MG ONCE A DAY)
     Dates: start: 20240903, end: 20250315

REACTIONS (9)
  - Pancreatitis acute [Fatal]
  - Hypophagia [Unknown]
  - Bacterial sepsis [Unknown]
  - Chills [Unknown]
  - Amylase increased [Unknown]
  - Pyrexia [Unknown]
  - Abdominal pain upper [Unknown]
  - Vomiting [Unknown]
  - Klebsiella test positive [Unknown]

NARRATIVE: CASE EVENT DATE: 20250316
